FAERS Safety Report 7718936-2 (Version None)
Quarter: 2011Q3

REPORT INFORMATION
  Report Type: 
  Country: None (occurrence: None)
  Receive Date: 20110830
  Receipt Date: 20110816
  Transmission Date: 20111222
  Serious: Yes (Hospitalization)
  Sender: FDA-Public Use
  Company Number: US-GLAXOSMITHKLINE-A0870867A

PATIENT
  Age: 66 Year
  Sex: Male
  Weight: 90.9 kg

DRUGS (7)
  1. LISINOPRIL [Concomitant]
  2. LOVASTATIN [Concomitant]
  3. METFORMIN HYDROCHLORIDE [Concomitant]
  4. AVANDIA [Suspect]
     Indication: DIABETES MELLITUS
     Dosage: 8MG PER DAY
     Route: 048
  5. GLYBURIDE [Concomitant]
  6. TENORMIN [Concomitant]
  7. CARDURA [Concomitant]

REACTIONS (2)
  - ATRIAL FIBRILLATION [None]
  - CEREBROVASCULAR ACCIDENT [None]
